FAERS Safety Report 6801704-3 (Version None)
Quarter: 2010Q2

REPORT INFORMATION
  Report Type: 
  Country: None (occurrence: None)
  Receive Date: 20100629
  Receipt Date: 20100607
  Transmission Date: 20101027
  Serious: Yes (Other)
  Sender: FDA-Public Use
  Company Number: GB-BRISTOL-MYERS SQUIBB COMPANY-15166663

PATIENT
  Age: 68 Year
  Sex: Male

DRUGS (2)
  1. ERBITUX [Suspect]
     Indication: COLORECTAL CANCER
     Dates: start: 20100412
  2. IRINOTECAN [Suspect]
     Indication: COLORECTAL CANCER

REACTIONS (2)
  - ONYCHOMADESIS [None]
  - RASH [None]
